FAERS Safety Report 8987544 (Version 6)
Quarter: 2013Q1

REPORT INFORMATION
  Report Type: Spontaneous
  Country: US (occurrence: US)
  Receive Date: 20121227
  Receipt Date: 20130207
  Transmission Date: 20140127
  Serious: Yes (Hospitalization, Other)
  Sender: FDA-Public Use
  Company Number: PHEH2012US025246

PATIENT
  Age: 56 Year
  Sex: Female
  Weight: 61.22 kg

DRUGS (17)
  1. GILENYA [Suspect]
     Indication: MULTIPLE SCLEROSIS
     Dosage: 0.5 MG, QD
     Route: 048
     Dates: start: 20121221
  2. COREG [Concomitant]
     Dosage: 6.25 MG, BID
     Route: 048
  3. COREG [Concomitant]
     Dosage: 12.5 MG BID
     Route: 048
  4. HYDROCODONE [Concomitant]
     Dosage: UNK UKN, UNK
     Route: 048
  5. HYDROXYZINE [Concomitant]
     Dosage: 25 MG, TID
     Route: 048
  6. PROVIGIL [Concomitant]
     Dosage: 200 MG, QD (MORNING)
     Route: 048
  7. LYRICA [Concomitant]
     Dosage: 100 MG, TID
  8. ARICEPT [Concomitant]
     Dosage: 10 MG, QD
     Route: 048
  9. ARICEPT [Concomitant]
     Dosage: 100 MG, QHS
  10. CYMBALTA [Concomitant]
     Dosage: 120 MG, QD
  11. CYMBALTA [Concomitant]
     Dosage: 60 MG QD
     Route: 048
  12. XANAX [Concomitant]
     Dosage: 0.5 MG, BID (PRN)
  13. RESTORIL [Concomitant]
     Dosage: 30 MG, QHS
  14. HYDROCHLOROTHIAZIDE [Concomitant]
     Dosage: 25 MG, QD
     Route: 048
  15. ACTHAR [Concomitant]
     Dosage: 80 U/MLPRN
  16. NORCO [Concomitant]
     Dosage: 325-7.5 MG QD
     Route: 048
  17. VIT D [Concomitant]
     Dosage: 2000 IU, QD
     Route: 048

REACTIONS (4)
  - Hypotension [Recovered/Resolved]
  - Dizziness [Unknown]
  - Pain in extremity [Unknown]
  - Drug ineffective [Unknown]
